FAERS Safety Report 7154235-8 (Version None)
Quarter: 2010Q4

REPORT INFORMATION
  Report Type: 
  Country: None (occurrence: None)
  Receive Date: 20101213
  Receipt Date: 20101130
  Transmission Date: 20110411
  Serious: Yes (Hospitalization)
  Sender: FDA-Public Use
  Company Number: TR-TYCO HEALTHCARE/MALLINCKRODT-T201002393

PATIENT
  Age: 85 Year
  Sex: Female

DRUGS (1)
  1. EXALGO [Suspect]
     Indication: PAIN
     Dosage: 8 MG, UNK
     Route: 048
     Dates: start: 20101101, end: 20101101

REACTIONS (4)
  - GASTRIC HAEMORRHAGE [None]
  - MALLORY-WEISS SYNDROME [None]
  - NAUSEA [None]
  - VOMITING [None]
